FAERS Safety Report 16510924 (Version 1)
Quarter: 2019Q3

REPORT INFORMATION
  Report Type: Spontaneous
  Country: US (occurrence: US)
  Receive Date: 20190702
  Receipt Date: 20190702
  Transmission Date: 20191004
  Serious: No
  Sender: FDA-Public Use
  Company Number: US-ACCORD-105862

PATIENT
  Sex: Female
  Weight: 52.62 kg

DRUGS (3)
  1. ASACOL [Concomitant]
     Active Substance: MESALAMINE
  2. MYCOPHENOLIC ACID. [Suspect]
     Active Substance: MYCOPHENOLIC ACID
     Indication: LUPUS NEPHRITIS
     Dosage: 500 MG 4 TABLETS DAY
     Dates: start: 2014
  3. PREDNISONE. [Concomitant]
     Active Substance: PREDNISONE

REACTIONS (4)
  - Diarrhoea [Unknown]
  - Off label use [Unknown]
  - Reaction to excipient [Unknown]
  - Nausea [Unknown]
